FAERS Safety Report 21266586 (Version 1)
Quarter: 2022Q3

REPORT INFORMATION
  Report Type: Spontaneous
  Country: JP (occurrence: JP)
  Receive Date: 20220829
  Receipt Date: 20220829
  Transmission Date: 20221027
  Serious: Yes (Other)
  Sender: FDA-Public Use
  Company Number: JP-NOVARTISPH-NVSJ2022JP096417

PATIENT
  Weight: .713 kg

DRUGS (9)
  1. CLOFAZIMINE [Suspect]
     Active Substance: CLOFAZIMINE
     Indication: Foetal exposure during pregnancy
     Dosage: UNK
     Route: 064
  2. ISONIAZID [Concomitant]
     Active Substance: ISONIAZID
     Indication: Foetal exposure during pregnancy
     Dosage: UNK
     Route: 064
  3. ETHAMBUTOL [Concomitant]
     Active Substance: ETHAMBUTOL HYDROCHLORIDE
     Indication: Foetal exposure during pregnancy
     Dosage: UNK
     Route: 064
  4. PYRAZINAMIDE [Concomitant]
     Active Substance: PYRAZINAMIDE
     Indication: Foetal exposure during pregnancy
     Dosage: UNK
     Route: 064
  5. RIFABUTIN [Concomitant]
     Active Substance: RIFABUTIN
     Indication: Foetal exposure during pregnancy
     Dosage: UNK
     Route: 064
  6. CYCLOSERINE [Concomitant]
     Active Substance: CYCLOSERINE
     Indication: Foetal exposure during pregnancy
     Dosage: UNK
     Route: 064
  7. PARA-AMINOSALICYLIC ACID [Concomitant]
     Active Substance: AMINOSALICYLIC ACID
     Indication: Foetal exposure during pregnancy
     Dosage: UNK
     Route: 064
  8. LEVOFLOXACIN [Concomitant]
     Active Substance: LEVOFLOXACIN
     Indication: Foetal exposure during pregnancy
     Dosage: UNK
     Route: 064
  9. LINEZOLID [Concomitant]
     Active Substance: LINEZOLID
     Indication: Foetal exposure during pregnancy
     Dosage: UNK
     Route: 064

REACTIONS (3)
  - Premature baby [Unknown]
  - Low birth weight baby [Unknown]
  - Foetal exposure during pregnancy [Unknown]
